FAERS Safety Report 24081172 (Version 1)
Quarter: 2024Q3

REPORT INFORMATION
  Report Type: Spontaneous
  Country: US (occurrence: US)
  Receive Date: 20240711
  Receipt Date: 20240711
  Transmission Date: 20241017
  Serious: No
  Sender: KRAMER LABORATORIES
  Company Number: US-KRAMERLABS-2023-US-039597

PATIENT
  Age: 39 Year
  Sex: Male
  Weight: 167.83 kg

DRUGS (3)
  1. NIZORAL A-D [Suspect]
     Active Substance: KETOCONAZOLE
     Indication: Dandruff
     Dosage: THREE TIMES DAILY
     Route: 061
     Dates: start: 20231025
  2. VITAMINS [Concomitant]
     Active Substance: VITAMINS
  3. OZEMPIC [Concomitant]
     Active Substance: SEMAGLUTIDE

REACTIONS (3)
  - Intentional product misuse [Unknown]
  - Drug ineffective [Unknown]
  - Inappropriate schedule of product administration [Unknown]

NARRATIVE: CASE EVENT DATE: 20231025
